FAERS Safety Report 22157848 (Version 1)
Quarter: 2023Q1

REPORT INFORMATION
  Report Type: Spontaneous
  Country: US (occurrence: US)
  Receive Date: 20230330
  Receipt Date: 20230330
  Transmission Date: 20230417
  Serious: No
  Sender: FDA-Public Use
  Company Number: US-PFIZER INC-202300133067

PATIENT
  Age: 63 Year
  Sex: Male

DRUGS (1)
  1. IBRANCE [Suspect]
     Active Substance: PALBOCICLIB
     Dosage: 125 MG, CYCLIC (DAILY, 3 WEES ON/1 WEEK OFF)
     Route: 048
     Dates: start: 20230224, end: 20230324

REACTIONS (3)
  - White blood cell count decreased [Unknown]
  - Epistaxis [Unknown]
  - Contusion [Unknown]
